FAERS Safety Report 6805192-2 (Version None)
Quarter: 2010Q2

REPORT INFORMATION
  Report Type: 
  Country: None (occurrence: None)
  Receive Date: 20100628
  Receipt Date: 20071015
  Transmission Date: 20101027
  Serious: No
  Sender: FDA-Public Use
  Company Number: US-PFIZER INC-2007069518

PATIENT
  Sex: Male
  Weight: 70.5 kg

DRUGS (7)
  1. XALATAN [Suspect]
     Indication: GLAUCOMA
     Route: 031
     Dates: start: 20061113
  2. POTASSIUM [Concomitant]
  3. WARFARIN SODIUM [Concomitant]
  4. TAMSULOSIN HYDROCHLORIDE [Concomitant]
  5. DIOVAN HCT [Concomitant]
  6. PROSCAR [Concomitant]
     Indication: PROSTATIC DISORDER
  7. CORDARONE [Concomitant]

REACTIONS (2)
  - HALO VISION [None]
  - INCORRECT DOSE ADMINISTERED [None]
